FAERS Safety Report 14553266 (Version 2)
Quarter: 2018Q1

REPORT INFORMATION
  Report Type: Spontaneous
  Country: US (occurrence: US)
  Receive Date: 20180220
  Receipt Date: 20180326
  Transmission Date: 20180509
  Serious: No
  Sender: FDA-Public Use
  Company Number: US-PFIZER INC-2018069810

PATIENT
  Age: 79 Year
  Sex: Female

DRUGS (1)
  1. SUTENT [Suspect]
     Active Substance: SUNITINIB MALATE
     Dosage: 50 MG, CYCLIC (1QD X 4 WEEKS ON AND 2 WEEKS OFF)
     Dates: start: 20171221, end: 20180308

REACTIONS (2)
  - Diarrhoea [Unknown]
  - Neoplasm progression [Unknown]
